FAERS Safety Report 21573155 (Version 4)
Quarter: 2025Q3

REPORT INFORMATION
  Report Type: Spontaneous
  Country: US (occurrence: US)
  Receive Date: 20221109
  Receipt Date: 20250922
  Transmission Date: 20251021
  Serious: Yes (Hospitalization, Other)
  Sender: PFIZER
  Company Number: US-PFIZER INC-202201284028

PATIENT
  Age: 63 Year
  Sex: Male

DRUGS (12)
  1. XELJANZ XR [Suspect]
     Active Substance: TOFACITINIB CITRATE
  2. AMLODIPINE [Concomitant]
     Active Substance: AMLODIPINE BESYLATE
  3. ATORVASTATIN [Concomitant]
     Active Substance: ATORVASTATIN
  4. FOLIC ACID [Concomitant]
     Active Substance: FOLIC ACID
  5. GABAPENTIN [Concomitant]
     Active Substance: GABAPENTIN
  6. HYDROCHLOROTHIAZIDE [Concomitant]
     Active Substance: HYDROCHLOROTHIAZIDE
  7. IBUPROFEN [Concomitant]
     Active Substance: IBUPROFEN
  8. LOSARTAN POTASSIUM [Concomitant]
     Active Substance: LOSARTAN POTASSIUM
  9. MONTELUKAST [Concomitant]
     Active Substance: MONTELUKAST
  10. NAPROXEN [Concomitant]
     Active Substance: NAPROXEN
  11. VITAMIN B12 [Concomitant]
     Active Substance: CYANOCOBALAMIN
  12. VITAMIN D NOS [Concomitant]
     Active Substance: CHOLECALCIFEROL\ERGOCALCIFEROL

REACTIONS (3)
  - Neck surgery [Unknown]
  - Neuropathy peripheral [Unknown]
  - Anxiety [Unknown]
